FAERS Safety Report 17111173 (Version 2)
Quarter: 2021Q3

REPORT INFORMATION
  Report Type: Report from Study
  Country: None (occurrence: FR)
  Receive Date: 20191204
  Receipt Date: 20210705
  Transmission Date: 20211014
  Serious: Yes (Other)
  Sender: FDA-Public Use
  Company Number: FR-ABBVIE-19K-056-3179113-00

PATIENT
  Age: 48 Year
  Sex: Male
  Weight: 79 kg

DRUGS (9)
  1. HUMIRA [Suspect]
     Active Substance: ADALIMUMAB
     Indication: COLITIS ULCERATIVE
     Route: 058
     Dates: start: 20170206, end: 20170206
  2. HUMIRA [Suspect]
     Active Substance: ADALIMUMAB
     Route: 058
  3. IMUREL [Concomitant]
     Active Substance: AZATHIOPRINE SODIUM
     Indication: COLITIS ULCERATIVE
     Route: 048
     Dates: start: 20170116, end: 20170915
  4. HUMIRA [Suspect]
     Active Substance: ADALIMUMAB
     Dosage: UPON 7TH VISIT
     Route: 058
     Dates: end: 20190308
  5. HUMIRA [Suspect]
     Active Substance: ADALIMUMAB
     Dosage: 2 WEEKS AFTER FIRST DOSE
     Route: 058
     Dates: start: 20170215, end: 20170215
  6. HUMIRA [Suspect]
     Active Substance: ADALIMUMAB
     Dosage: UPON 4TH VISIT
     Route: 058
  7. HUMIRA [Suspect]
     Active Substance: ADALIMUMAB
     Route: 058
     Dates: start: 201702
  8. CORTANCYL [Concomitant]
     Active Substance: PREDNISONE
     Indication: COLITIS ULCERATIVE
     Route: 048
     Dates: start: 20170116, end: 20190206
  9. ROWASA [Concomitant]
     Active Substance: MESALAMINE
     Indication: COLITIS ULCERATIVE
     Route: 054
     Dates: start: 20170515

REACTIONS (6)
  - Asthma [Recovered/Resolved]
  - Rectal haemorrhage [Recovered/Resolved]
  - Tendon pain [Recovered/Resolved]
  - Frequent bowel movements [Recovered/Resolved]
  - Myalgia [Recovered/Resolved]
  - Arthralgia [Recovered/Resolved]

NARRATIVE: CASE EVENT DATE: 2017
